FAERS Safety Report 5889164-0 (Version None)
Quarter: 2008Q3

REPORT INFORMATION
  Report Type: 
  Country: None (occurrence: None)
  Receive Date: 20080919
  Receipt Date: 20080910
  Transmission Date: 20090109
  Serious: Yes (Hospitalization)
  Sender: FDA-Public Use
  Company Number: FR-JNJFOC-20080806146

PATIENT
  Sex: Male
  Weight: 110 kg

DRUGS (12)
  1. TMC125 [Suspect]
     Route: 048
  2. TMC125 [Suspect]
     Indication: HIV INFECTION
     Route: 048
  3. TMC114 [Suspect]
     Route: 048
  4. TMC114 [Suspect]
     Indication: HIV INFECTION
     Route: 048
  5. RITONAVIR [Suspect]
     Indication: HIV INFECTION
     Route: 048
  6. COMBIVIR [Concomitant]
     Indication: HIV INFECTION
     Route: 048
  7. VIREAD [Concomitant]
     Indication: HIV INFECTION
     Route: 048
  8. NEURONTIN [Concomitant]
     Indication: CONVULSION
  9. LAROXYL [Concomitant]
     Indication: NEUROPATHY PERIPHERAL
  10. RIVOTRIL [Concomitant]
     Indication: CONVULSION
  11. GLUCOPHAGE [Concomitant]
     Indication: DIABETES MELLITUS
     Route: 048
  12. ACETAMINOPHEN [Concomitant]
     Indication: HEADACHE

REACTIONS (1)
  - OSTEONECROSIS [None]
